FAERS Safety Report 4940102-4 (Version None)
Quarter: 2006Q1

REPORT INFORMATION
  Report Type: 
  Country: None (occurrence: None)
  Receive Date: 20060307
  Receipt Date: 20060303
  Transmission Date: 20060701
  Serious: Yes (Other)
  Sender: FDA-Public Use
  Company Number: 2006S1000737

PATIENT
  Age: 27 Year
  Sex: Male
  Weight: 47.6277 kg

DRUGS (8)
  1. FENTANYL TRANSDERMAL SYSTEM [Suspect]
     Indication: ARTHRALGIA
     Dosage: 100 UG/HR; QOD; TRANS
     Route: 062
     Dates: start: 20050901
  2. FENTANYL TRANSDERMAL SYSTEM [Suspect]
     Indication: HIP SURGERY
     Dosage: 100 UG/HR; QOD; TRANS
     Route: 062
     Dates: start: 20050901
  3. CARBAMAZEPINE [Concomitant]
  4. BACLOFEN [Concomitant]
  5. DIAZEPAM [Concomitant]
  6. ACETAMINOPHEN [Concomitant]
  7. IBUPROFEN [Concomitant]
  8. LIDOCAINE [Concomitant]

REACTIONS (5)
  - CONVULSION [None]
  - DRUG EFFECT DECREASED [None]
  - DRUG WITHDRAWAL SYNDROME [None]
  - PAIN [None]
  - PHARMACEUTICAL PRODUCT COMPLAINT [None]
